FAERS Safety Report 5877323-2 (Version None)
Quarter: 2008Q3

REPORT INFORMATION
  Report Type: 
  Country: None (occurrence: None)
  Receive Date: 20080908
  Receipt Date: 20080821
  Transmission Date: 20090109
  Serious: Yes (Other)
  Sender: FDA-Public Use
  Company Number: 8030200

PATIENT
  Age: 20 Year
  Sex: Male
  Weight: 60 kg

DRUGS (2)
  1. KEPPRA [Suspect]
     Indication: EPILEPSY
     Dosage: 50 MG 2/D PO
     Route: 048
     Dates: start: 20011201
  2. KEPPRA [Suspect]
     Indication: EPILEPSY

REACTIONS (2)
  - AUTOIMMUNE THROMBOCYTOPENIA [None]
  - EPISTAXIS [None]
